FAERS Safety Report 24623162 (Version 2)
Quarter: 2025Q3

REPORT INFORMATION
  Report Type: Report from Study
  Country: US (occurrence: US)
  Receive Date: 20241115
  Receipt Date: 20250809
  Transmission Date: 20251021
  Serious: Yes (Hospitalization)
  Sender: ALEXION PHARMACEUTICALS
  Company Number: US-ASTRAZENECA-202410USA012657US

PATIENT
  Sex: Female

DRUGS (39)
  1. FASENRA [Suspect]
     Active Substance: BENRALIZUMAB
     Indication: Asthma
  2. OMEPRAZOLE [Suspect]
     Active Substance: OMEPRAZOLE
     Route: 065
  3. ALPRAZOLAM [Concomitant]
     Active Substance: ALPRAZOLAM
     Route: 065
  4. AMITRIPTYLINE [Concomitant]
     Active Substance: AMITRIPTYLINE
     Route: 065
  5. ALBUTEROL [Concomitant]
     Active Substance: ALBUTEROL
     Route: 065
  6. AMLODIPINE [Concomitant]
     Active Substance: AMLODIPINE BESYLATE
  7. AZITHROMYCIN [Concomitant]
     Active Substance: AZITHROMYCIN
  8. AZITHROMYCIN [Concomitant]
     Active Substance: AZITHROMYCIN
  9. BUSPIRONE [Concomitant]
     Active Substance: BUSPIRONE HYDROCHLORIDE
  10. CELECOXIB [Concomitant]
     Active Substance: CELECOXIB
  11. CITALOPRAM [Concomitant]
     Active Substance: CITALOPRAM
  12. CYCLOBENZAPRINE [Concomitant]
     Active Substance: CYCLOBENZAPRINE
  13. DEXILANT [Concomitant]
     Active Substance: DEXLANSOPRAZOLE
  14. EPINEPHRINE [Concomitant]
     Active Substance: EPINEPHRINE
     Route: 065
  15. ESCITALOPRAM [Concomitant]
     Active Substance: ESCITALOPRAM OXALATE
  16. ESCITALOPRAM [Concomitant]
     Active Substance: ESCITALOPRAM OXALATE
  17. ESTRADIOL [Concomitant]
     Active Substance: ESTRADIOL
     Route: 065
  18. FLUTICASONE [Concomitant]
     Active Substance: FLUTICASONE
  19. FUROSEMIDE [Concomitant]
     Active Substance: FUROSEMIDE
  20. HYDROCHLOROTHIAZIDE [Concomitant]
     Active Substance: HYDROCHLOROTHIAZIDE
  21. IBUPROFEN [Concomitant]
     Active Substance: IBUPROFEN
  22. LORAZEPAM [Concomitant]
     Active Substance: LORAZEPAM
  23. LOSARTAN POTASSIUM [Concomitant]
     Active Substance: LOSARTAN POTASSIUM
  24. MELOXICAM [Concomitant]
     Active Substance: MELOXICAM
  25. METHOCARBAMOL [Concomitant]
     Active Substance: METHOCARBAMOL
  26. METHYLPREDNISOLONE [Concomitant]
     Active Substance: METHYLPREDNISOLONE
  27. MONTELUKAST [Concomitant]
     Active Substance: MONTELUKAST
  28. OMEPRAZOLE [Concomitant]
     Active Substance: OMEPRAZOLE
  29. PANTOPRAZOLE [Concomitant]
     Active Substance: PANTOPRAZOLE
  30. PANTOPRAZOLE [Concomitant]
     Active Substance: PANTOPRAZOLE
  31. PREDNISONE [Concomitant]
     Active Substance: PREDNISONE
  32. PROMETHAZINE [Concomitant]
     Active Substance: PROMETHAZINE HYDROCHLORIDE
  33. SPIRONOLACTONE [Concomitant]
     Active Substance: SPIRONOLACTONE
  34. SPIRONOLACTONE [Concomitant]
     Active Substance: SPIRONOLACTONE
  35. SUCRALFATE [Concomitant]
     Active Substance: SUCRALFATE
  36. TESTOSTERONE [Concomitant]
     Active Substance: TESTOSTERONE
     Route: 065
  37. TRAMADOL HCL [Concomitant]
     Active Substance: TRAMADOL HYDROCHLORIDE
  38. ZOLPIDEM [Concomitant]
     Active Substance: ZOLPIDEM TARTRATE
  39. ZOLPIDEM [Concomitant]
     Active Substance: ZOLPIDEM TARTRATE

REACTIONS (4)
  - Fall [Unknown]
  - Joint dislocation [Unknown]
  - Quality of life decreased [Unknown]
  - Drug ineffective [Unknown]
